FAERS Safety Report 20945581 (Version 1)
Quarter: 2022Q2

REPORT INFORMATION
  Report Type: Report from Study
  Country: CO (occurrence: CO)
  Receive Date: 20220610
  Receipt Date: 20220610
  Transmission Date: 20220721
  Serious: Yes (Other)
  Sender: FDA-Public Use
  Company Number: CO-NOVARTISPH-NVSC2022CO131396

PATIENT
  Sex: Male

DRUGS (1)
  1. ELTROMBOPAG OLAMINE [Suspect]
     Active Substance: ELTROMBOPAG OLAMINE
     Indication: Aplastic anaemia
     Dosage: 50 MG (EVERY 8 HOURS)
     Route: 048

REACTIONS (9)
  - Myelodysplastic syndrome [Unknown]
  - Type 2 diabetes mellitus [Unknown]
  - Embolism [Unknown]
  - Peripheral artery thrombosis [Unknown]
  - Anxiety disorder [Unknown]
  - Intervertebral disc disorder [Unknown]
  - Chronic gastritis [Unknown]
  - Radiculopathy [Unknown]
  - Inappropriate schedule of product administration [Unknown]
